FAERS Safety Report 14422819 (Version 3)
Quarter: 2018Q1

REPORT INFORMATION
  Report Type: Spontaneous
  Country: BR (occurrence: BR)
  Receive Date: 20180123
  Receipt Date: 20180205
  Transmission Date: 20180509
  Serious: Yes (Hospitalization, Other)
  Sender: FDA-Public Use
  Company Number: BR-BEH-2018086996

PATIENT
  Age: 6 Year
  Sex: Male
  Weight: 23.5 kg

DRUGS (5)
  1. HIZENTRA [Suspect]
     Active Substance: HUMAN IMMUNOGLOBULIN G
     Dosage: 700 MG/KG, QMT
     Route: 058
  2. HIZENTRA [Suspect]
     Active Substance: HUMAN IMMUNOGLOBULIN G
     Dosage: 400 MG/KG, QMT
     Route: 058
  3. HIZENTRA [Suspect]
     Active Substance: HUMAN IMMUNOGLOBULIN G
     Indication: WISKOTT-ALDRICH SYNDROME
     Dosage: UNK
     Route: 058
     Dates: start: 20171109
  4. VALPROATE SODIUM. [Concomitant]
     Active Substance: VALPROATE SODIUM
  5. CARBAMAZEPINA [Concomitant]
     Active Substance: CARBAMAZEPINE

REACTIONS (1)
  - Hepatoblastoma [Recovered/Resolved]

NARRATIVE: CASE EVENT DATE: 20171123
